FAERS Safety Report 16123522 (Version 2)
Quarter: 2019Q2

REPORT INFORMATION
  Report Type: Spontaneous
  Country: ES (occurrence: ES)
  Receive Date: 20190327
  Receipt Date: 20190411
  Transmission Date: 20190711
  Serious: Yes (Death, Hospitalization, Other)
  Sender: FDA-Public Use
  Company Number: ES-ROCHE-2290072

PATIENT
  Age: 78 Year
  Sex: Male

DRUGS (6)
  1. BISOPROLOL ALPHARMA [Concomitant]
  2. ATORVASTATINE ARROW [Concomitant]
     Active Substance: ATORVASTATIN
  3. CEFUROXIME AXETIL. [Concomitant]
     Active Substance: CEFUROXIME AXETIL
  4. ACETYLSALICYLIC ACID ^MONOT^ [Concomitant]
  5. ESBRIET [Suspect]
     Active Substance: PIRFENIDONE
     Indication: IDIOPATHIC PULMONARY FIBROSIS
     Route: 048
     Dates: start: 201808
  6. ESBRIET [Suspect]
     Active Substance: PIRFENIDONE
     Route: 048
     Dates: start: 201810, end: 20190314

REACTIONS (4)
  - Fatigue [Unknown]
  - Confusional state [Unknown]
  - Respiratory disorder [Fatal]
  - Renal colic [Unknown]

NARRATIVE: CASE EVENT DATE: 20190303
